FAERS Safety Report 5815511-1 (Version None)
Quarter: 2008Q3

REPORT INFORMATION
  Report Type: 
  Country: None (occurrence: None)
  Receive Date: 20080715
  Receipt Date: 20080709
  Transmission Date: 20090109
  Serious: Yes (Death)
  Sender: FDA-Public Use
  Company Number: 008-C5013-08020003

PATIENT
  Age: 73 Year
  Sex: Male
  Weight: 68 kg

DRUGS (3)
  1. CC-5013 (LENALIDOMIDE) (CAPSULES) [Suspect]
     Indication: MULTIPLE MYELOMA
     Dosage: 25 MG, DAILY, ORAL
     Route: 048
     Dates: start: 20071003
  2. DEXAMETHASONE TAB [Suspect]
     Indication: MULTIPLE MYELOMA
     Dosage: 40 MG, DAYS 1-4
     Dates: start: 20071003
  3. WARFARIN SODIUM [Concomitant]

REACTIONS (5)
  - DISEASE COMPLICATION [None]
  - HAEMORRHAGE [None]
  - HEAD INJURY [None]
  - LACERATION [None]
  - MULTI-ORGAN FAILURE [None]
